FAERS Safety Report 17700613 (Version 1)
Quarter: 2020Q2

REPORT INFORMATION
  Report Type: Spontaneous
  Country: US (occurrence: US)
  Receive Date: 20200423
  Receipt Date: 20200423
  Transmission Date: 20200714
  Serious: No
  Sender: FDA-Public Use
  Company Number: US-ASTRAZENECA-2020SE51372

PATIENT
  Age: 75 Year
  Sex: Male

DRUGS (18)
  1. FUROSEMIDE. [Concomitant]
     Active Substance: FUROSEMIDE
  2. LISINOPRIL. [Concomitant]
     Active Substance: LISINOPRIL
  3. GLUCOSAMINE/CHONDROITIN [Concomitant]
  4. FISH OIL [Concomitant]
     Active Substance: FISH OIL
  5. CALCIUM 600 [Concomitant]
     Active Substance: CALCIUM
  6. DULOXETINE. [Concomitant]
     Active Substance: DULOXETINE
  7. ASPIRIN. [Concomitant]
     Active Substance: ASPIRIN
  8. ACETYLSALICYLIC ACID [Concomitant]
     Active Substance: ASPIRIN
  9. VITAMIN B12 [Concomitant]
     Active Substance: CYANOCOBALAMIN
  10. SEROQUEL [Suspect]
     Active Substance: QUETIAPINE FUMARATE
     Indication: PARKINSON^S DISEASE
     Route: 048
  11. AMLODIPINE [Concomitant]
     Active Substance: AMLODIPINE BESYLATE
  12. VITAMIN C [Concomitant]
     Active Substance: ASCORBIC ACID
  13. SIMVASTATIN. [Concomitant]
     Active Substance: SIMVASTATIN
  14. METOPROLOL. [Concomitant]
     Active Substance: METOPROLOL
  15. VITAMIN D3 [Concomitant]
     Active Substance: CHOLECALCIFEROL
  16. CALCIUM [Concomitant]
     Active Substance: CALCIUM
  17. METOPROLOL TARTRATE. [Suspect]
     Active Substance: METOPROLOL TARTRATE
     Route: 065
  18. RIVASTIGMINE HYDGROGEN TARTRATE [Concomitant]

REACTIONS (5)
  - Abnormal behaviour [Not Recovered/Not Resolved]
  - Hypersomnia [Not Recovered/Not Resolved]
  - Balance disorder [Unknown]
  - Diarrhoea [Not Recovered/Not Resolved]
  - Gait disturbance [Not Recovered/Not Resolved]

NARRATIVE: CASE EVENT DATE: 201610
